FAERS Safety Report 12922740 (Version 3)
Quarter: 2016Q4

REPORT INFORMATION
  Report Type: Report from Study
  Country: PT (occurrence: PT)
  Receive Date: 20161109
  Receipt Date: 20161221
  Transmission Date: 20170207
  Serious: Yes (Hospitalization, Other)
  Sender: FDA-Public Use
  Company Number: PT-BIOGEN-2016BI00315615

PATIENT
  Age: 62 Year
  Sex: Female

DRUGS (2)
  1. AVONEX [Suspect]
     Active Substance: INTERFERON BETA-1A
     Indication: RELAPSING-REMITTING MULTIPLE SCLEROSIS
  2. AVONEX [Suspect]
     Active Substance: INTERFERON BETA-1A
     Indication: PRIMARY PROGRESSIVE MULTIPLE SCLEROSIS
     Route: 030
     Dates: start: 201610

REACTIONS (4)
  - Wrist fracture [Unknown]
  - Loss of control of legs [Unknown]
  - Fall [Recovered/Resolved]
  - Intentional product use issue [Unknown]

NARRATIVE: CASE EVENT DATE: 201610
